FAERS Safety Report 14008818 (Version 1)
Quarter: 2017Q3

REPORT INFORMATION
  Report Type: Spontaneous
  Country: FI (occurrence: FI)
  Receive Date: 20170925
  Receipt Date: 20170925
  Transmission Date: 20171128
  Serious: Yes (Other)
  Sender: FDA-Public Use
  Company Number: FI-PFIZER INC-2017408438

PATIENT
  Age: 54 Year
  Sex: Male

DRUGS (3)
  1. TEMSIROLIMUS [Suspect]
     Active Substance: TEMSIROLIMUS
     Indication: ACUTE MYELOID LEUKAEMIA
     Dosage: UNK
  2. SUNITINIB MALATE. [Suspect]
     Active Substance: SUNITINIB MALATE
     Indication: ACUTE MYELOID LEUKAEMIA
     Dosage: UNK
  3. DASATINIB [Suspect]
     Active Substance: DASATINIB
     Indication: ACUTE MYELOID LEUKAEMIA
     Dosage: UNK

REACTIONS (5)
  - Febrile neutropenia [Unknown]
  - Product use in unapproved indication [Unknown]
  - Neoplasm recurrence [Unknown]
  - Platelet count decreased [Unknown]
  - Diarrhoea [Unknown]
